FAERS Safety Report 7805488-1 (Version None)
Quarter: 2011Q4

REPORT INFORMATION
  Report Type: 
  Country: None (occurrence: None)
  Receive Date: 20111010
  Receipt Date: 20110930
  Transmission Date: 20120403
  Serious: Yes (Hospitalization, Other)
  Sender: FDA-Public Use
  Company Number: PHEH2011US00470

PATIENT
  Sex: Male

DRUGS (16)
  1. PRECEDEX [Concomitant]
  2. NASACORT [Concomitant]
     Dosage: 55 UG, QD
     Route: 045
  3. ZOLPIDEM [Concomitant]
  4. VITAMIN D [Concomitant]
  5. XANAX [Concomitant]
     Dosage: 1 MG, PRN
     Route: 048
  6. LORTAB [Concomitant]
     Dosage: 1 DF, Q4H
     Route: 048
  7. PANTOPRAZOLE [Concomitant]
     Dosage: 40 MG, BID
     Route: 048
  8. VITAMIN B-12 [Concomitant]
  9. LEVBID [Concomitant]
  10. FLEXERIL [Concomitant]
     Dosage: 10 MG, TID
  11. CLINDAMYCIN [Concomitant]
  12. MOTRIN [Concomitant]
     Dosage: 800 MG, Q6H
     Route: 048
  13. LORAZEPAM [Concomitant]
     Dosage: 1 MG, Q6H
     Route: 042
  14. ALPRAZOLAM [Concomitant]
  15. ZOMETA [Suspect]
     Indication: NON-SMALL CELL LUNG CANCER METASTATIC
     Dosage: 4 MG, QMO
     Dates: start: 20071002
  16. METOPROLOL TARTRATE [Concomitant]
     Dosage: 12.5 MG, BID

REACTIONS (63)
  - HAEMATEMESIS [None]
  - PROSTATIC CALCIFICATION [None]
  - MALAISE [None]
  - ASTHENIA [None]
  - HYPOAESTHESIA [None]
  - DEPRESSION [None]
  - WEIGHT DECREASED [None]
  - DUODENAL ULCER [None]
  - FACET JOINT SYNDROME [None]
  - DYSPNOEA [None]
  - METASTASES TO BONE [None]
  - FATIGUE [None]
  - BACK PAIN [None]
  - HYPERLIPIDAEMIA [None]
  - CHEST PAIN [None]
  - PAIN IN JAW [None]
  - GASTROINTESTINAL HAEMORRHAGE [None]
  - DEFORMITY [None]
  - PANCREATIC CYST [None]
  - AORTIC CALCIFICATION [None]
  - SCIATICA [None]
  - EMPHYSEMA [None]
  - DIVERTICULUM INTESTINAL [None]
  - DIZZINESS [None]
  - TOOTH ABSCESS [None]
  - JAW FRACTURE [None]
  - PARAESTHESIA ORAL [None]
  - INFECTION [None]
  - ANXIETY [None]
  - INTERVERTEBRAL DISC PROTRUSION [None]
  - HYPOTENSION [None]
  - POLLAKIURIA [None]
  - METASTASES TO SPINE [None]
  - NASOPHARYNGITIS [None]
  - EMOTIONAL DISTRESS [None]
  - PULMONARY FIBROSIS [None]
  - TACHYCARDIA [None]
  - CARDIOMEGALY [None]
  - ADRENAL HAEMORRHAGE [None]
  - OSTEONECROSIS OF JAW [None]
  - PAIN [None]
  - INJURY [None]
  - INTERVERTEBRAL DISC DEGENERATION [None]
  - CEREBROSCLEROSIS [None]
  - ANAEMIA [None]
  - PAIN IN EXTREMITY [None]
  - RESPIRATORY FAILURE [None]
  - PNEUMONIA [None]
  - VASCULAR CALCIFICATION [None]
  - METASTATIC NEOPLASM [None]
  - OSTEOLYSIS [None]
  - ATELECTASIS [None]
  - MACROCYTOSIS [None]
  - HYPONATRAEMIA [None]
  - HYPOKINESIA [None]
  - EXPOSED BONE IN JAW [None]
  - SINUS CONGESTION [None]
  - HYPERTENSION [None]
  - HAEMATOCHEZIA [None]
  - CHRONIC OBSTRUCTIVE PULMONARY DISEASE [None]
  - SINUS DISORDER [None]
  - LOOSE TOOTH [None]
  - EAR PAIN [None]
